FAERS Safety Report 8345883 (Version 6)
Quarter: 2013Q2

REPORT INFORMATION
  Report Type: Spontaneous
  Country: US (occurrence: None)
  Receive Date: 20111212
  Receipt Date: 20120611
  Transmission Date: 20140414
  Serious: Yes (Other)
  Sender: FDA-Public Use
  Company Number: PHHY2010US68431

PATIENT
  Age: 43 Year
  Sex: Female

DRUGS (17)
  1. EXTAVIA [Suspect]
     Indication: RELAPSING-REMITTING MULTIPLE SCLEROSIS
     Dosage: 0.3 MG, QOD, SUBCUTANEOUS
     Route: 058
     Dates: start: 201009, end: 20120124
  2. ZETIA (EZETIMIBE) [Concomitant]
  3. EFFEXOR [Concomitant]
  4. SYNTHROID [Concomitant]
  5. TOPROL XL [Concomitant]
  6. SINGULAIR [Concomitant]
  7. VITAMIN D (ERGOCALCIFEROL) [Concomitant]
  8. VITAMIN B12 [Concomitant]
  9. CALCIUM CARBONATE [Concomitant]
  10. MULTIVITAMINS (ASCORBIC ACID, ERGOCALCIFEROL, FOLIC ACID, NICOTINAMIDE, PANTHENOL, RETINOL, RIBOFLAV [Concomitant]
  11. ALBUTEROL (SALBUTAMOL) [Concomitant]
  12. MECLIZINE [Concomitant]
  13. NALTREXONE HYDROCHLORIDE [Concomitant]
  14. TRAMADOL HYDROCHLORIDE [Concomitant]
  15. LORTAB [Concomitant]
  16. ZYRTEC [Concomitant]
  17. STEROID (NO INGREDIENTS/SUBSTANCES) [Concomitant]

REACTIONS (9)
  - MULTIPLE SCLEROSIS RELAPSE [None]
  - INJECTION SITE VESICLES [None]
  - INJECTION SITE REACTION [None]
  - GAIT DISTURBANCE [None]
  - INJECTION SITE DISCOLOURATION [None]
  - INJECTION SITE ERYTHEMA [None]
  - INJECTION SITE SWELLING [None]
  - DRUG EFFECT DECREASED [None]
  - NEUROLOGICAL DECOMPENSATION [None]
